FAERS Safety Report 10071541 (Version 1)
Quarter: 2014Q2

REPORT INFORMATION
  Report Type: Spontaneous
  Country: US (occurrence: US)
  Receive Date: 20140410
  Receipt Date: 20140410
  Transmission Date: 20141212
  Serious: No
  Sender: FDA-Public Use
  Company Number: US-BRISTOL-MYERS SQUIBB COMPANY-20154431

PATIENT
  Age: 66 Year
  Sex: Female
  Weight: 74.37 kg

DRUGS (1)
  1. NULOJIX [Suspect]
     Dosage: LAST INFUSION : 06JAN2014

REACTIONS (1)
  - Herpes zoster [Unknown]
